FAERS Safety Report 9365319 (Version 2)
Quarter: 2013Q3

REPORT INFORMATION
  Report Type: Spontaneous
  Country: IT (occurrence: IT)
  Receive Date: 20130625
  Receipt Date: 20130730
  Transmission Date: 20140515
  Serious: Yes (Hospitalization, Other)
  Sender: FDA-Public Use
  Company Number: IT-MERCK-1306ITA009964

PATIENT
  Age: 62 Year
  Sex: Male

DRUGS (7)
  1. JANUVIA [Suspect]
     Indication: TYPE 2 DIABETES MELLITUS
     Dosage: 100 MG, QD
     Route: 048
     Dates: start: 20120629, end: 20130131
  2. JANUVIA [Suspect]
     Dosage: 100 MG, QD
     Route: 048
     Dates: start: 20090807, end: 20110531
  3. SIMVASTATIN [Concomitant]
     Dosage: 20 MG DAILY
     Route: 048
     Dates: start: 2002
  4. ALLOPURINOL [Concomitant]
     Dosage: 150 MG
     Dates: start: 2011
  5. RAMIPRIL [Concomitant]
     Indication: NEPHROPROTECTIVE THERAPY
     Dosage: 2.5 MG
     Dates: start: 2011
  6. GLYBURIDE (+) METFORMIN HYDROCHLORIDE [Concomitant]
     Indication: TYPE 2 DIABETES MELLITUS
     Dosage: UNK
     Dates: start: 20110517, end: 20130131
  7. GLYBURIDE (+) METFORMIN HYDROCHLORIDE [Concomitant]
     Dosage: UNK
     Route: 048
     Dates: start: 2002

REACTIONS (2)
  - Pancreatic carcinoma [Recovering/Resolving]
  - Drug ineffective [Unknown]
